FAERS Safety Report 7577004-3 (Version None)
Quarter: 2011Q2

REPORT INFORMATION
  Report Type: 
  Country: None (occurrence: None)
  Receive Date: 20110624
  Receipt Date: 20110624
  Transmission Date: 20111010
  Serious: No
  Sender: FDA-Public Use
  Company Number: None

PATIENT
  Age: 39 Year
  Sex: Female
  Weight: 64.4108 kg

DRUGS (1)
  1. CETIRIZINE HYDROCHLORIDE [Suspect]
     Indication: SEASONAL ALLERGY
     Dosage: 1 TABLET ORALLY EVERY DAY PO
     Route: 048

REACTIONS (6)
  - PRURITUS [None]
  - ARTHRALGIA [None]
  - URTICARIA [None]
  - WITHDRAWAL SYNDROME [None]
  - DEPRESSION [None]
  - AUTOIMMUNE DISORDER [None]
